FAERS Safety Report 17362846 (Version 4)
Quarter: 2020Q2

REPORT INFORMATION
  Report Type: Spontaneous
  Country: US (occurrence: US)
  Receive Date: 20200203
  Receipt Date: 20200402
  Transmission Date: 20200713
  Serious: Yes (Other)
  Sender: FDA-Public Use
  Company Number: US-PFIZER INC-2020039069

PATIENT
  Age: 77 Year
  Sex: Female
  Weight: 66 kg

DRUGS (6)
  1. LYRICA [Suspect]
     Active Substance: PREGABALIN
     Indication: NERVE INJURY
     Dosage: UNK
  2. LYRICA [Suspect]
     Active Substance: PREGABALIN
     Indication: NEUROPATHY PERIPHERAL
  3. PREGABALIN. [Suspect]
     Active Substance: PREGABALIN
     Indication: NERVE INJURY
     Dosage: 125 MG, DAILY, (50 MG IN THE MORNING AND 75 MG IN THE EVENING)
  4. PREGABALIN. [Suspect]
     Active Substance: PREGABALIN
     Indication: NEUROPATHY PERIPHERAL
     Dosage: 75 MG, 1X/DAY (DAILY, AT NIGHT)
     Route: 048
  5. PREGABALIN. [Suspect]
     Active Substance: PREGABALIN
     Indication: SEIZURE
  6. LYRICA [Suspect]
     Active Substance: PREGABALIN
     Indication: SEIZURE

REACTIONS (25)
  - Hypothyroidism [Unknown]
  - Anxiety [Not Recovered/Not Resolved]
  - Insomnia [Not Recovered/Not Resolved]
  - Musculoskeletal pain [Unknown]
  - Dry mouth [Unknown]
  - Body height decreased [Unknown]
  - Somnolence [Unknown]
  - Nail disorder [Unknown]
  - Sensory disturbance [Unknown]
  - Seizure [Unknown]
  - Depressed mood [Unknown]
  - Onychophagia [Unknown]
  - Depression [Unknown]
  - Irritability [Not Recovered/Not Resolved]
  - Skin haemorrhage [Unknown]
  - Fluid retention [Not Recovered/Not Resolved]
  - Scratch [Unknown]
  - Therapeutic product effect incomplete [Unknown]
  - Abnormal behaviour [Unknown]
  - Weight increased [Not Recovered/Not Resolved]
  - Disturbance in attention [Not Recovered/Not Resolved]
  - Restlessness [Unknown]
  - Logorrhoea [Unknown]
  - Dizziness [Unknown]
  - Pruritus [Unknown]
